FAERS Safety Report 14145330 (Version 1)
Quarter: 2017Q4

REPORT INFORMATION
  Report Type: Spontaneous
  Country: US (occurrence: None)
  Receive Date: 20171030
  Receipt Date: 20171030
  Transmission Date: 20180321
  Serious: Yes (Life-Threatening, Hospitalization)
  Sender: FDA-Public Use
  Company Number: None

PATIENT
  Age: 49 Year
  Sex: Male
  Weight: 166.3 kg

DRUGS (1)
  1. BRENTUXIMAB [Suspect]
     Active Substance: BRENTUXIMAB VEDOTIN
     Indication: HODGKIN^S DISEASE
     Route: 042
     Dates: start: 20170718, end: 20170726

REACTIONS (10)
  - Vomiting [None]
  - Hypokalaemia [None]
  - Hypophosphataemia [None]
  - Immunosuppression [None]
  - Respiratory depression [None]
  - Tachycardia [None]
  - Febrile neutropenia [None]
  - Infection [None]
  - Nausea [None]
  - Sepsis [None]

NARRATIVE: CASE EVENT DATE: 20170726
